FAERS Safety Report 7686905 (Version 2)
Quarter: 2013Q3

REPORT INFORMATION
  Report Type: Report from Study
  Country: JP (occurrence: JP)
  Receive Date: 20101130
  Receipt Date: 20130725
  Transmission Date: 20140515
  Serious: Yes (Hospitalization, Other)
  Sender: FDA-Public Use
  Company Number: PHHY2010JP78237

PATIENT
  Age: 62 Year
  Sex: Male

DRUGS (6)
  1. AFINITOR [Suspect]
     Indication: METASTATIC RENAL CELL CARCINOMA
     Dosage: 10 MG, DAILY
     Route: 048
     Dates: start: 20100515, end: 20100604
  2. INTERFERON ALFA [Concomitant]
     Indication: METASTATIC RENAL CELL CARCINOMA
     Dosage: 6000000 IU
     Dates: start: 200603, end: 200709
  3. SUNITINIB MALATE [Concomitant]
     Indication: METASTATIC RENAL CELL CARCINOMA
     Dosage: 50 MG
     Route: 048
     Dates: start: 20100405, end: 20100423
  4. NOVAMIN [Concomitant]
     Dosage: 15 MG
     Route: 048
     Dates: start: 20100414, end: 20100524
  5. NORVASC [Concomitant]
     Dosage: 10 MG
     Route: 048
     Dates: start: 20100416, end: 20100604
  6. THYRADIN S [Concomitant]
     Dosage: 50 MG
     Route: 048
     Dates: start: 20100326, end: 20100604

REACTIONS (2)
  - Blood creatinine increased [Unknown]
  - Stomatitis [Not Recovered/Not Resolved]
